FAERS Safety Report 5010785-1 (Version None)
Quarter: 2006Q2

REPORT INFORMATION
  Report Type: 
  Country: None (occurrence: None)
  Receive Date: 20060525
  Receipt Date: 20060404
  Transmission Date: 20061013
  Serious: Yes (Hospitalization)
  Sender: FDA-Public Use
  Company Number: GB-AVENTIS-200613680GDDC

PATIENT
  Age: 43 Year
  Sex: Female

DRUGS (3)
  1. TAXOTERE [Suspect]
     Indication: BREAST CANCER
     Route: 042
     Dates: start: 20060222, end: 20060222
  2. TAXOTERE [Suspect]
  3. ANASTROZOLE [Concomitant]
     Indication: BREAST CANCER
     Dates: start: 20060111, end: 20060222

REACTIONS (5)
  - GRAFT VERSUS HOST DISEASE [None]
  - NEUTROPENIA [None]
  - OEDEMA PERIPHERAL [None]
  - PYREXIA [None]
  - RASH MACULO-PAPULAR [None]
